FAERS Safety Report 10255944 (Version 1)
Quarter: 2014Q2

REPORT INFORMATION
  Report Type: Report from Study
  Country: US (occurrence: US)
  Receive Date: 20140624
  Receipt Date: 20140624
  Transmission Date: 20141212
  Serious: Yes (Hospitalization)
  Sender: FDA-Public Use
  Company Number: US-GLAXOSMITHKLINE-A1078148A

PATIENT
  Age: 65 Year
  Sex: Male
  Weight: 83.9 kg

DRUGS (2)
  1. PAZOPANIB [Suspect]
     Indication: PAPILLARY THYROID CANCER
     Dosage: 600MG PER DAY
     Route: 048
     Dates: start: 20130807
  2. TRAMETINIB [Suspect]
     Indication: PAPILLARY THYROID CANCER
     Dosage: 1MG PER DAY
     Route: 048
     Dates: start: 20130807

REACTIONS (1)
  - Anaemia [Recovered/Resolved]
